FAERS Safety Report 24654179 (Version 1)
Quarter: 2024Q4

REPORT INFORMATION
  Report Type: Spontaneous
  Country: US (occurrence: None)
  Receive Date: 20241122
  Receipt Date: 20241122
  Transmission Date: 20250115
  Serious: Yes (Other)
  Sender: Public
  Company Number: None

PATIENT
  Age: 81 Year
  Sex: Female
  Weight: 102 kg

DRUGS (1)
  1. DOCETAXEL [Suspect]
     Active Substance: DOCETAXEL
     Indication: Breast cancer

REACTIONS (8)
  - Dyspnoea [None]
  - Erythema [None]
  - Hyperhidrosis [None]
  - Oxygen saturation decreased [None]
  - Back pain [None]
  - Blood pressure increased [None]
  - Asthenia [None]
  - Somnolence [None]

NARRATIVE: CASE EVENT DATE: 20241121
